FAERS Safety Report 13685466 (Version 3)
Quarter: 2017Q3

REPORT INFORMATION
  Report Type: Report from Study
  Country: US (occurrence: US)
  Receive Date: 20170623
  Receipt Date: 20170719
  Transmission Date: 20171127
  Serious: Yes (Hospitalization)
  Sender: FDA-Public Use
  Company Number: US-ACTELION-A-NJ2017-155425

PATIENT
  Age: 67 Year
  Sex: Female
  Weight: 97.51 kg

DRUGS (5)
  1. OPSUMIT [Concomitant]
     Active Substance: MACITENTAN
     Indication: PULMONARY ARTERIAL HYPERTENSION
     Route: 048
  2. ADEMPAS [Concomitant]
     Active Substance: RIOCIGUAT
  3. VELETRI [Suspect]
     Active Substance: EPOPROSTENOL
     Indication: PULMONARY ARTERIAL HYPERTENSION
     Dosage: 2 NG/KG, PER MIN
     Route: 042
     Dates: start: 20170612, end: 20170626
  4. ADCIRCA [Concomitant]
     Active Substance: TADALAFIL
  5. ELIQUIS [Concomitant]
     Active Substance: APIXABAN

REACTIONS (9)
  - Disease complication [Unknown]
  - Pulmonary arterial hypertension [Unknown]
  - Drug intolerance [Unknown]
  - Nausea [Unknown]
  - Abdominal pain upper [Unknown]
  - Headache [Unknown]
  - Flushing [Unknown]
  - Hypotension [Unknown]
  - Anxiety [Unknown]

NARRATIVE: CASE EVENT DATE: 20170612
